FAERS Safety Report 10185950 (Version 2)
Quarter: 2014Q2

REPORT INFORMATION
  Report Type: Report from Study
  Country: JP (occurrence: JP)
  Receive Date: 20140521
  Receipt Date: 20140521
  Transmission Date: 20141212
  Serious: Yes (Life-Threatening, Other)
  Sender: FDA-Public Use
  Company Number: JP-CELGENEUS-087-50794-14011288

PATIENT
  Age: 62 Year
  Sex: Male
  Weight: 83 kg

DRUGS (23)
  1. VIDAZA [Suspect]
     Indication: MYELODYSPLASTIC SYNDROME
     Dosage: 75 MILLIGRAM/SQ. METER
     Route: 041
     Dates: start: 20110628, end: 20110704
  2. VIDAZA [Suspect]
     Dosage: 75 MILLIGRAM/SQ. METER
     Route: 041
     Dates: start: 20110823, end: 20110827
  3. VIDAZA [Suspect]
     Dosage: 75 MILLIGRAM/SQ. METER
     Route: 041
     Dates: start: 20110926, end: 20110930
  4. VIDAZA [Suspect]
     Dosage: 75 MILLIGRAM/SQ. METER
     Route: 041
     Dates: start: 20111024, end: 20111028
  5. VIDAZA [Suspect]
     Dosage: 75 MILLIGRAM/SQ. METER
     Route: 041
     Dates: start: 20111128, end: 20111202
  6. VIDAZA [Suspect]
     Dosage: 75 MILLIGRAM/SQ. METER
     Route: 041
     Dates: start: 20120104, end: 20120106
  7. VIDAZA [Suspect]
     Dosage: 75 MILLIGRAM/SQ. METER
     Route: 041
     Dates: start: 20120110, end: 20120111
  8. SEROTONE [Concomitant]
     Indication: PRODUCT USED FOR UNKNOWN INDICATION
     Route: 065
     Dates: start: 20110628, end: 20110704
  9. SEROTONE [Concomitant]
     Route: 065
     Dates: start: 20110823, end: 20110827
  10. SEROTONE [Concomitant]
     Route: 065
     Dates: start: 20110926, end: 20110930
  11. SEROTONE [Concomitant]
     Route: 065
     Dates: start: 20111024, end: 20111028
  12. SEROTONE [Concomitant]
     Route: 065
     Dates: start: 20111128, end: 20111202
  13. SEROTONE [Concomitant]
     Route: 065
     Dates: start: 20120104, end: 20120111
  14. SAXIZON [Concomitant]
     Indication: PRODUCT USED FOR UNKNOWN INDICATION
     Route: 065
     Dates: start: 20110703, end: 20110706
  15. GRAN [Concomitant]
     Indication: PRODUCT USED FOR UNKNOWN INDICATION
     Route: 065
     Dates: start: 20110715, end: 20110720
  16. GRAN [Concomitant]
     Route: 065
     Dates: start: 20110828, end: 20110909
  17. GRAN [Concomitant]
     Route: 065
     Dates: start: 20110930, end: 20111011
  18. GRAN [Concomitant]
     Route: 065
     Dates: start: 20111031, end: 20111116
  19. GRAN [Concomitant]
     Route: 065
     Dates: start: 20111205, end: 20111216
  20. GRAN [Concomitant]
     Route: 065
     Dates: start: 20120111, end: 20120120
  21. PIRETAZOL [Concomitant]
     Indication: PRODUCT USED FOR UNKNOWN INDICATION
     Route: 065
     Dates: start: 20110801, end: 20110805
  22. MINOPEN [Concomitant]
     Indication: PRODUCT USED FOR UNKNOWN INDICATION
     Route: 065
     Dates: start: 20111102, end: 20111102
  23. RED BLOOD CELLS [Concomitant]
     Indication: PRODUCT USED FOR UNKNOWN INDICATION
     Route: 041

REACTIONS (7)
  - Neutrophil count decreased [Recovered/Resolved]
  - Neutrophil count decreased [Recovered/Resolved]
  - Neutrophil count decreased [Recovered/Resolved]
  - Neutrophil count decreased [Recovered/Resolved]
  - Neutrophil count decreased [Recovered/Resolved]
  - Neutrophil count decreased [Recovered/Resolved]
  - Rash [Recovered/Resolved]
